FAERS Safety Report 7404229-X (Version None)
Quarter: 2011Q2

REPORT INFORMATION
  Report Type: 
  Country: None (occurrence: None)
  Receive Date: 20110408
  Receipt Date: 20110408
  Transmission Date: 20111010
  Serious: Yes (Other)
  Sender: FDA-Public Use
  Company Number: CA-PURDUE-USA-2010-0049677

PATIENT
  Sex: Male
  Weight: 67.5 kg

DRUGS (2)
  1. NALOXONE [Suspect]
     Indication: DRUG LEVEL
     Dosage: 0.035 MG/KG, UNK
     Route: 042
     Dates: start: 20101020, end: 20101020
  2. OXYCODONE INJECTABLE 10 MG/ML [Suspect]
     Indication: DRUG LEVEL
     Dosage: 0.07 MG/KG, UNK
     Route: 042
     Dates: start: 20101020, end: 20101020

REACTIONS (1)
  - VENTRICULAR TACHYCARDIA [None]
